FAERS Safety Report 16626277 (Version 2)
Quarter: 2020Q2

REPORT INFORMATION
  Report Type: Spontaneous
  Country: ID (occurrence: ID)
  Receive Date: 20190724
  Receipt Date: 20200610
  Transmission Date: 20200713
  Serious: Yes (Other)
  Sender: FDA-Public Use
  Company Number: ID-BAYER-2019-133424

PATIENT
  Age: 15 Year
  Sex: Female

DRUGS (18)
  1. SUCRALFATE. [Concomitant]
     Active Substance: SUCRALFATE
     Indication: GASTRIC ULCER
     Dosage: UNK
     Dates: start: 20190625
  2. PHENYTOIN. [Concomitant]
     Active Substance: PHENYTOIN
     Indication: SEIZURE
     Dosage: UNK
     Route: 048
     Dates: start: 20190625
  3. ALOPURINOL [Concomitant]
     Active Substance: ALLOPURINOL
  4. KETOROLAC [Concomitant]
     Active Substance: KETOROLAC TROMETHAMINE
     Indication: ANALGESIC THERAPY
     Dosage: UNK
     Route: 042
     Dates: start: 20190625
  5. RISPERIDONE. [Concomitant]
     Active Substance: RISPERIDONE
  6. OMEPRAZOLE. [Concomitant]
     Active Substance: OMEPRAZOLE
     Indication: ANALGESIC THERAPY
     Dosage: UNK
     Dates: start: 20190629
  7. OXICAM [Concomitant]
  8. RANITIDINE. [Concomitant]
     Active Substance: RANITIDINE
     Route: 042
  9. TRAMADOL. [Concomitant]
     Active Substance: TRAMADOL
     Indication: ANALGESIC THERAPY
     Dosage: UNK
     Dates: start: 20190622
  10. PIRACETAM [Concomitant]
     Active Substance: PIRACETAM
     Dosage: 600 MG
     Route: 048
  11. MANNITOL. [Concomitant]
     Active Substance: MANNITOL
     Indication: SWELLING
  12. COXICAM [MELOXICAM] [Concomitant]
  13. MANNITOL. [Concomitant]
     Active Substance: MANNITOL
     Indication: OEDEMA
     Dosage: UNK
     Dates: start: 20190622
  14. GADOVIST [Suspect]
     Active Substance: GADOBUTROL
     Indication: MAGNETIC RESONANCE IMAGING BRAIN
     Dosage: 5 ML, ONCE
     Dates: start: 20190705
  15. ONDANSETRON [Concomitant]
     Active Substance: ONDANSETRON
     Route: 042
  16. LACTULAC [Concomitant]
  17. DEXAMETHASONE. [Concomitant]
     Active Substance: DEXAMETHASONE
     Route: 042
  18. LAMOTRIGINE. [Concomitant]
     Active Substance: LAMOTRIGINE

REACTIONS (1)
  - Stevens-Johnson syndrome [None]

NARRATIVE: CASE EVENT DATE: 20190706
